FAERS Safety Report 14783067 (Version 7)
Quarter: 2019Q2

REPORT INFORMATION
  Report Type: Spontaneous
  Country: US (occurrence: US)
  Receive Date: 20180420
  Receipt Date: 20190529
  Transmission Date: 20190711
  Serious: Yes (Congenital Anomaly, Other)
  Sender: FDA-Public Use
  Company Number: PHHY2015US126048

PATIENT
  Sex: Male

DRUGS (2)
  1. ZOFRAN [Suspect]
     Active Substance: ONDANSETRON HYDROCHLORIDE
     Indication: FOETAL EXPOSURE DURING PREGNANCY
     Dosage: MOTHER DOSE: 01 DF, Q4H
     Route: 064
  2. ONDANSETRON [Suspect]
     Active Substance: ONDANSETRON
     Indication: FOETAL EXPOSURE DURING PREGNANCY
     Dosage: MOTHER DOSE: 01 DF, Q4H
     Route: 064

REACTIONS (20)
  - Otitis media acute [Unknown]
  - Upper respiratory tract infection [Unknown]
  - Wheezing [Unknown]
  - Otitis media chronic [Unknown]
  - Foetal exposure during pregnancy [Unknown]
  - Bronchial hyperreactivity [Unknown]
  - Speech sound disorder [Unknown]
  - Cleft palate [Unknown]
  - Language disorder [Unknown]
  - Diarrhoea [Unknown]
  - Selective eating disorder [Unknown]
  - Middle ear effusion [Unknown]
  - Dysarthria [Unknown]
  - Pyrexia [Unknown]
  - Jaundice neonatal [Unknown]
  - Speech disorder [Unknown]
  - Cough [Unknown]
  - Eustachian tube dysfunction [Unknown]
  - Autism spectrum disorder [Unknown]
  - Vomiting [Unknown]
